FAERS Safety Report 5737231-4 (Version None)
Quarter: 2008Q2

REPORT INFORMATION
  Report Type: 
  Country: None (occurrence: None)
  Receive Date: 20080514
  Receipt Date: 20080514
  Transmission Date: 20081010
  Serious: Yes (Hospitalization)
  Sender: FDA-Public Use
  Company Number: None

PATIENT
  Sex: Female
  Weight: 33.4 kg

DRUGS (2)
  1. HEPARIN LOCK-FLUSH [Suspect]
     Indication: INDWELLING CATHETER MANAGEMENT
     Dosage: 3 ML Q 8 HOURS IV
     Route: 042
  2. HEPARIN LOCK-FLUSH [Suspect]
     Indication: INDWELLING CATHETER MANAGEMENT
     Dosage: 3 ML Q 8 HOURS IV
     Route: 042

REACTIONS (2)
  - CATHETER RELATED COMPLICATION [None]
  - PHARMACEUTICAL PRODUCT COMPLAINT [None]
